FAERS Safety Report 5297921-7 (Version None)
Quarter: 2007Q2

REPORT INFORMATION
  Report Type: 
  Country: None (occurrence: None)
  Receive Date: 20070416
  Receipt Date: 20070412
  Transmission Date: 20071010
  Serious: Yes (Other)
  Sender: FDA-Public Use
  Company Number: PE-GLAXOSMITHKLINE-A0647063A

PATIENT
  Age: 16 Year
  Sex: Female

DRUGS (1)
  1. SEROXAT [Suspect]
     Indication: MAJOR DEPRESSION
     Dosage: 160MG PER DAY
     Route: 048
     Dates: start: 20070407

REACTIONS (3)
  - OVERDOSE [None]
  - SOMNOLENCE [None]
  - SUICIDE ATTEMPT [None]
